FAERS Safety Report 4709980-8 (Version None)
Quarter: 2005Q3

REPORT INFORMATION
  Report Type: 
  Country: None (occurrence: None)
  Receive Date: 20050708
  Receipt Date: 20050627
  Transmission Date: 20060218
  Serious: Yes (Hospitalization)
  Sender: FDA-Public Use
  Company Number: PHRM2005FR01966

PATIENT
  Age: 73 Year
  Sex: Female

DRUGS (4)
  1. ZOMETA [Suspect]
     Indication: METASTASES TO BONE
     Dosage: 4 MG, QMO
     Route: 042
     Dates: start: 20030515, end: 20050606
  2. ENDOXAN [Suspect]
     Dosage: UNK, UNK
     Route: 042
     Dates: start: 20040412, end: 20050404
  3. ADRIAMYCIN PFS [Suspect]
     Route: 042
     Dates: start: 20040412, end: 20050404
  4. FLUOROURACIL [Suspect]
     Route: 042
     Dates: start: 20040412, end: 20050404

REACTIONS (6)
  - ASEPTIC NECROSIS BONE [None]
  - BONE EROSION [None]
  - IMPAIRED HEALING [None]
  - PAIN IN JAW [None]
  - SURGERY [None]
  - TOOTH EXTRACTION [None]
